FAERS Safety Report 5041450-2 (Version None)
Quarter: 2006Q2

REPORT INFORMATION
  Report Type: 
  Country: None (occurrence: None)
  Receive Date: 20060627
  Receipt Date: 20060616
  Transmission Date: 20061013
  Serious: Yes (Hospitalization)
  Sender: FDA-Public Use
  Company Number: 012314

PATIENT
  Age: 50 Year
  Sex: Male

DRUGS (2)
  1. PRIALT [Suspect]
     Indication: BACK PAIN
     Dosage: SEE  IMAGE, INTRATHECAL
     Route: 037
     Dates: start: 20060101
  2. PRIALT [Suspect]
     Indication: BACK PAIN
     Dosage: SEE  IMAGE, INTRATHECAL
     Route: 037
     Dates: start: 20060601

REACTIONS (15)
  - ABDOMINAL PAIN [None]
  - AGEUSIA [None]
  - APHAGIA [None]
  - ASTHENIA [None]
  - CHEST PAIN [None]
  - DYSGEUSIA [None]
  - FEELING JITTERY [None]
  - GINGIVAL DISORDER [None]
  - HEADACHE [None]
  - MUSCLE TIGHTNESS [None]
  - NAUSEA [None]
  - NECK PAIN [None]
  - TENSION [None]
  - TINNITUS [None]
  - VISION BLURRED [None]
